FAERS Safety Report 26211136 (Version 1)
Quarter: 2025Q4

REPORT INFORMATION
  Report Type: Spontaneous
  Country: KR (occurrence: KR)
  Receive Date: 20251230
  Receipt Date: 20251230
  Transmission Date: 20260118
  Serious: Yes (Death, Life-Threatening, Hospitalization, Other)
  Sender: AMGEN
  Company Number: KR-AMGEN-KORSP2025254014

PATIENT

DRUGS (3)
  1. ROMIPLOSTIM [Suspect]
     Active Substance: ROMIPLOSTIM
     Indication: Immune thrombocytopenia
     Dosage: 250 MICROGRAM (AROUND 3-5MCG/KG)
     Route: 065
  2. METHYLPREDNISOLONE [Concomitant]
     Active Substance: METHYLPREDNISOLONE
     Indication: Immune thrombocytopenia
     Dosage: UNK
     Route: 040
  3. PREDNISOLONE [Concomitant]
     Active Substance: PREDNISOLONE
     Indication: Immune thrombocytopenia
     Dosage: UNK
     Route: 048

REACTIONS (17)
  - Lymphoma [Fatal]
  - Myelofibrosis [Fatal]
  - Pancreatic carcinoma [Fatal]
  - Pulmonary embolism [Fatal]
  - Haemorrhagic pneumonia [Fatal]
  - Pulmonary haemorrhage [Fatal]
  - Arthralgia [Unknown]
  - Polycythaemia [Unknown]
  - Haemorrhage [Unknown]
  - Infection [Unknown]
  - Thrombosis [Unknown]
  - Embolism [Unknown]
  - Immune thrombocytopenia [Unknown]
  - Headache [Unknown]
  - Hypertransaminasaemia [Unknown]
  - Therapy non-responder [Unknown]
  - Loss of therapeutic response [Unknown]
